FAERS Safety Report 6458460-0 (Version None)
Quarter: 2009Q4

REPORT INFORMATION
  Report Type: 
  Country: None (occurrence: None)
  Receive Date: 20091126
  Receipt Date: 20091117
  Transmission Date: 20100525
  Serious: Yes (Hospitalization)
  Sender: FDA-Public Use
  Company Number: US-BIOGENIDEC-2009BI034414

PATIENT
  Age: 39 Year
  Sex: Female

DRUGS (9)
  1. TYSABRI [Suspect]
     Indication: MULTIPLE SCLEROSIS
     Route: 042
     Dates: start: 20081106
  2. CARAFATE [Concomitant]
     Dosage: DOSE UNIT:100
     Route: 048
  3. LORAZEPAM [Concomitant]
  4. MIRTAZAPINE [Concomitant]
  5. MORPHINE [Concomitant]
  6. PREVACID [Concomitant]
  7. TUMS [Concomitant]
  8. TUMS [Concomitant]
  9. SIMETHICONE [Concomitant]

REACTIONS (8)
  - CANDIDIASIS [None]
  - DEVICE RELATED SEPSIS [None]
  - ENTEROCOCCAL INFECTION [None]
  - PARAESTHESIA [None]
  - PNEUMONIA KLEBSIELLA [None]
  - STAPHYLOCOCCAL INFECTION [None]
  - STREPTOCOCCAL INFECTION [None]
  - URINARY TRACT INFECTION [None]
